FAERS Safety Report 7280360-7 (Version None)
Quarter: 2011Q1

REPORT INFORMATION
  Report Type: 
  Country: None (occurrence: None)
  Receive Date: 20110208
  Receipt Date: 20110126
  Transmission Date: 20110831
  Serious: Yes (Hospitalization, Other)
  Sender: FDA-Public Use
  Company Number: US-ELI_LILLY_AND_COMPANY-US201101006877

PATIENT
  Sex: Female

DRUGS (9)
  1. AMBIEN [Concomitant]
  2. NEURONTIN [Concomitant]
  3. FOSAMAX [Concomitant]
  4. FORTEO [Suspect]
     Indication: OSTEOPOROSIS
     Dosage: 20 UG, DAILY (1/D)
     Dates: start: 20090601
  5. PLAVIX [Concomitant]
  6. EVISTA [Suspect]
  7. SKELAXIN [Concomitant]
  8. AMITRIPTYLINE HCL [Concomitant]
  9. ALLEGRA [Concomitant]

REACTIONS (2)
  - PANCREATIC CARCINOMA [None]
  - FRACTURE [None]
